FAERS Safety Report 10163965 (Version 1)
Quarter: 2014Q2

REPORT INFORMATION
  Report Type: Spontaneous
  Country: US (occurrence: US)
  Receive Date: 20140510
  Receipt Date: 20140510
  Transmission Date: 20141212
  Serious: No
  Sender: FDA-Public Use
  Company Number: US-BRISTOL-MYERS SQUIBB COMPANY-19720507

PATIENT
  Age: 61 Year
  Sex: Male
  Weight: 100.68 kg

DRUGS (13)
  1. BYETTA [Suspect]
     Indication: TYPE 2 DIABETES MELLITUS
     Dates: start: 2013
  2. BUSPAR [Concomitant]
  3. METFORMIN [Concomitant]
  4. LOSARTAN [Concomitant]
  5. LOMOTIL [Concomitant]
     Dosage: 1DF:2.5 / 0.025MG QID
  6. ZYRTEC [Concomitant]
  7. TOPROL XL [Concomitant]
  8. SINGULAIR [Concomitant]
  9. GLYBURIDE [Concomitant]
  10. MIRAPEX [Concomitant]
  11. LIVALO [Concomitant]
  12. ALPRAZOLAM [Concomitant]
  13. TESSALON [Concomitant]

REACTIONS (1)
  - Abdominal pain upper [Unknown]
